FAERS Safety Report 7528835-7 (Version None)
Quarter: 2011Q2

REPORT INFORMATION
  Report Type: 
  Country: None (occurrence: None)
  Receive Date: 20110607
  Receipt Date: 20101220
  Transmission Date: 20111010
  Serious: No
  Sender: FDA-Public Use
  Company Number: US-ASTRAZENECA-2011SE01042

PATIENT
  Age: 72 Year
  Sex: Female

DRUGS (3)
  1. XANAX [Concomitant]
     Dosage: UNKNOWN.
  2. PRILOSEC OTC [Suspect]
     Route: 048
     Dates: start: 20101210
  3. BLOOD PRESSURE MEDICATION [Concomitant]
     Dosage: UNKNOWN.

REACTIONS (3)
  - ARTHRALGIA [None]
  - HEADACHE [None]
  - PAIN IN EXTREMITY [None]
